FAERS Safety Report 4526435-4 (Version None)
Quarter: 2004Q4

REPORT INFORMATION
  Report Type: 
  Country: None (occurrence: None)
  Receive Date: 20041214
  Receipt Date: 20041202
  Transmission Date: 20050328
  Serious: Yes (Hospitalization)
  Sender: FDA-Public Use
  Company Number: FR-AMGEN-UK101260

PATIENT
  Age: 59 Year
  Sex: Female
  Weight: 57 kg

DRUGS (6)
  1. NEUPOGEN [Suspect]
     Indication: CHEMOTHERAPY
     Route: 058
  2. ENDOXAN [Suspect]
     Route: 042
     Dates: start: 20040726, end: 20040726
  3. FARMORUBICIN [Suspect]
     Route: 042
     Dates: start: 20040726, end: 20040726
  4. FLUOROURACIL [Suspect]
     Route: 042
     Dates: start: 20040726, end: 20040726
  5. ZOMETA [Suspect]
     Route: 042
     Dates: end: 20040821
  6. DEXRAZOXANE [Suspect]
     Route: 042
     Dates: start: 20040726, end: 20040726

REACTIONS (7)
  - DEHYDRATION [None]
  - HYPOKALAEMIA [None]
  - HYPOPHOSPHATAEMIA [None]
  - OSTEOLYSIS [None]
  - PROTEINURIA [None]
  - RENAL FAILURE [None]
  - RENAL TUBULAR DISORDER [None]
